FAERS Safety Report 7769067-7 (Version None)
Quarter: 2011Q3

REPORT INFORMATION
  Report Type: 
  Country: None (occurrence: None)
  Receive Date: 20110922
  Receipt Date: 20100916
  Transmission Date: 20111222
  Serious: No
  Sender: FDA-Public Use
  Company Number: US-ASTRAZENECA-2008UW28651

PATIENT
  Age: 596 Month
  Sex: Male

DRUGS (18)
  1. SEROQUEL [Suspect]
     Indication: BIPOLAR DISORDER
     Route: 048
     Dates: start: 20030904, end: 20050507
  2. HYDROXYZINE HYDROCHLORIDE [Concomitant]
     Dates: start: 20050505
  3. PHENOBARB [Concomitant]
     Indication: CONVULSION
  4. METHOCARBAMOL [Concomitant]
     Dates: start: 20030508
  5. SYNTHROID [Concomitant]
     Dosage: 5MCG
     Dates: start: 20031205
  6. FLUOXETINE [Concomitant]
     Dates: start: 20061025
  7. ZYPREXA [Concomitant]
     Dates: start: 20030513
  8. SEROQUEL [Suspect]
     Dosage: 300MG TO 600MG
     Route: 048
     Dates: start: 20050101, end: 20060101
  9. NIFEDIPINE [Concomitant]
     Dates: start: 20030508
  10. FLUOXETINE [Concomitant]
     Dates: start: 20030508, end: 20050421
  11. MAVIK [Concomitant]
     Dates: start: 20031106
  12. AMBIEN [Concomitant]
     Dates: end: 20051213
  13. DILANTIN [Concomitant]
     Indication: CONVULSION
  14. ABILIFY [Concomitant]
     Dates: start: 20050505
  15. SEROQUEL [Suspect]
     Indication: DEPRESSION
     Route: 048
     Dates: start: 20030904, end: 20050507
  16. SEROQUEL [Suspect]
     Dosage: 300MG TO 600MG
     Route: 048
     Dates: start: 20050101, end: 20060101
  17. LIPITOR [Concomitant]
     Dates: start: 20031205
  18. HALDOL [Concomitant]
     Dosage: 5 MG IN HE MORNING AND TWO AT BEDTIME .
     Dates: start: 20061025

REACTIONS (2)
  - ADVERSE DRUG REACTION [None]
  - DIABETES MELLITUS [None]
